FAERS Safety Report 18986835 (Version 1)
Quarter: 2021Q1

REPORT INFORMATION
  Report Type: Spontaneous
  Country: RU (occurrence: RU)
  Receive Date: 20210309
  Receipt Date: 20210309
  Transmission Date: 20210420
  Serious: Yes (Hospitalization)
  Sender: FDA-Public Use
  Company Number: RU-ROCHE-2784676

PATIENT
  Age: 42 Year
  Sex: Female

DRUGS (3)
  1. NIVOLUMAB [Suspect]
     Active Substance: NIVOLUMAB
     Indication: METASTATIC MALIGNANT MELANOMA
     Route: 065
  2. ZELBORAF [Suspect]
     Active Substance: VEMURAFENIB
     Indication: METASTATIC MALIGNANT MELANOMA
     Route: 065
     Dates: start: 202002
  3. COTELLIC [Suspect]
     Active Substance: COBIMETINIB
     Indication: METASTATIC MALIGNANT MELANOMA
     Route: 065
     Dates: start: 202002

REACTIONS (6)
  - Purpura [Unknown]
  - Body temperature increased [Unknown]
  - Blood creatinine increased [Unknown]
  - Stomatitis [Unknown]
  - Transaminases increased [Unknown]
  - Platelet count decreased [Unknown]
